FAERS Safety Report 20871153 (Version 3)
Quarter: 2022Q3

REPORT INFORMATION
  Report Type: Report from Study
  Country: US (occurrence: None)
  Receive Date: 20220525
  Receipt Date: 20220707
  Transmission Date: 20221026
  Serious: Yes (Death)
  Sender: FDA-Public Use
  Company Number: US-Merck Healthcare KGaA-9324140

PATIENT
  Age: 61 Year
  Sex: Female

DRUGS (1)
  1. REBIF [Suspect]
     Active Substance: INTERFERON BETA-1A
     Indication: Multiple sclerosis
     Route: 058
     Dates: start: 202005

REACTIONS (1)
  - Death [Fatal]

NARRATIVE: CASE EVENT DATE: 20220422
